FAERS Safety Report 8777238 (Version 3)
Quarter: 2012Q4

REPORT INFORMATION
  Report Type: 
  Country: JP (occurrence: JP)
  Receive Date: 20120911
  Receipt Date: 20121025
  Transmission Date: 20130627
  Serious: Yes (Hospitalization)
  Sender: FDA-Public Use
  Company Number: JP-BAXTER-2012BAX016065

PATIENT
  Sex: Male

DRUGS (2)
  1. DIANEAL-N PD-2 2.5 PD SOLUTION [Suspect]
     Indication: RENAL FAILURE CHRONIC
     Route: 033
  2. EXTRANEAL PD SOLUTION [Suspect]
     Indication: RENAL FAILURE CHRONIC
     Route: 033

REACTIONS (2)
  - Pyrexia [Recovered/Resolved]
  - Peritoneal effluent abnormal [Recovered/Resolved]
